FAERS Safety Report 26144476 (Version 1)
Quarter: 2025Q4

REPORT INFORMATION
  Report Type: Spontaneous
  Country: US (occurrence: US)
  Receive Date: 20251211
  Receipt Date: 20251211
  Transmission Date: 20260117
  Serious: Yes (Hospitalization, Other)
  Sender: RANBAXY
  Company Number: US-SUN PHARMACEUTICAL INDUSTRIES INC-2025R1-541091

PATIENT
  Age: 61 Year
  Sex: Female

DRUGS (3)
  1. PREDNISONE [Suspect]
     Active Substance: PREDNISONE
     Indication: Immune-mediated hepatic disorder
     Dosage: 80 MILLIGRAM
     Route: 065
  2. CELLCEPT [Suspect]
     Active Substance: MYCOPHENOLATE MOFETIL
     Indication: Immune-mediated hepatic disorder
     Dosage: 2000 MILLIGRAM
     Route: 065
  3. ADRIAMYCIN [Suspect]
     Active Substance: DOXORUBICIN HYDROCHLORIDE
     Indication: Sarcomatoid carcinoma
     Dosage: UNK
     Route: 065

REACTIONS (5)
  - Cushing^s syndrome [Unknown]
  - Bile duct stone [Unknown]
  - Sepsis [Unknown]
  - Hyperglycaemia [Unknown]
  - Hyponatraemia [Unknown]
